FAERS Safety Report 8305627-2 (Version None)
Quarter: 2012Q2

REPORT INFORMATION
  Report Type: 
  Country: None (occurrence: None)
  Receive Date: 20120423
  Receipt Date: 20120410
  Transmission Date: 20120825
  Serious: Yes (Other)
  Sender: FDA-Public Use
  Company Number: US-BAYER-2012-037775

PATIENT
  Age: 71 Year
  Sex: Male
  Weight: 138.35 kg

DRUGS (17)
  1. RIVAROXABAN [Interacting]
     Dosage: 20 MG, HS
     Route: 048
     Dates: start: 20120306, end: 20120320
  2. ALBUTEROL [Concomitant]
     Dosage: 300 MG, QD
     Route: 048
     Dates: start: 20120308
  3. VITAMIN D [Concomitant]
     Indication: VITAMIN SUPPLEMENTATION
     Dosage: 1000 IU, QD
     Route: 048
     Dates: start: 20071214
  4. STOOL SOFTENER [Concomitant]
     Dosage: 100 MG, QD
     Route: 048
     Dates: start: 20100601
  5. GLYBURIDE [Concomitant]
     Indication: DIABETES MELLITUS
     Dosage: 4 MG, QD
     Route: 048
     Dates: start: 20080706
  6. JANUVIA [Concomitant]
     Indication: DIABETES MELLITUS
     Dosage: 100 MG, QD
     Route: 048
     Dates: start: 20071212
  7. SYNTHROID [Concomitant]
     Dosage: 100 MG, QD
     Route: 048
     Dates: start: 20070508
  8. FLUOXETINE [Concomitant]
     Indication: ANXIETY
     Dosage: 20 MG, QD
     Route: 048
     Dates: start: 20080816
  9. RIVAROXABAN [Interacting]
     Indication: ATRIAL FIBRILLATION
     Dosage: 15 MG, HS
     Route: 048
     Dates: start: 20120320
  10. FLUOXETINE [Concomitant]
     Indication: DEPRESSION
     Dosage: 20 MG, QD
     Route: 048
     Dates: start: 20080816
  11. ZOLPIDEM [Concomitant]
     Indication: INSOMNIA
     Dosage: 10 MG, QD
     Route: 048
     Dates: start: 20120202
  12. SUPER B COMPLEX [Concomitant]
     Route: 048
     Dates: start: 20100601
  13. METOPROLOL SUCCINATE [Concomitant]
     Route: 048
     Dates: start: 20120306
  14. ASPIRIN [Suspect]
     Dosage: 81 MG, QD
     Route: 048
     Dates: start: 20071214
  15. PREVACID [Concomitant]
     Indication: GASTROOESOPHAGEAL REFLUX DISEASE
     Dosage: 30 MG, QD
     Route: 048
     Dates: start: 19940915
  16. LIPITOR [Concomitant]
     Indication: BLOOD CHOLESTEROL INCREASED
     Dosage: 40 MG, QD
     Route: 048
     Dates: start: 20070508
  17. DIOVAN [Concomitant]
     Indication: HYPERTENSION
     Dosage: 160 MG, QD
     Route: 048
     Dates: start: 20100201

REACTIONS (2)
  - EPISTAXIS [None]
  - LABORATORY TEST ABNORMAL [None]
